FAERS Safety Report 8242704-9 (Version None)
Quarter: 2012Q1

REPORT INFORMATION
  Report Type: 
  Country: None (occurrence: None)
  Receive Date: 20120314
  Receipt Date: 20101229
  Transmission Date: 20120608
  Serious: No
  Sender: FDA-Public Use
  Company Number: PHHY2010US89840

PATIENT
  Sex: Male

DRUGS (1)
  1. FANAPT [Suspect]
     Indication: BIPOLAR I DISORDER
     Dosage: UNK, ORAL
     Route: 048

REACTIONS (2)
  - HEART RATE INCREASED [None]
  - DRY MOUTH [None]
